FAERS Safety Report 24195676 (Version 4)
Quarter: 2024Q4

REPORT INFORMATION
  Report Type: Report from Study
  Country: US (occurrence: US)
  Receive Date: 20240809
  Receipt Date: 20241112
  Transmission Date: 20250115
  Serious: Yes (Other)
  Sender: ALEXION PHARMACEUTICALS
  Company Number: US-AstraZeneca-CH-00679772A

PATIENT

DRUGS (8)
  1. STRENSIQ [Suspect]
     Active Substance: ASFOTASE ALFA
     Indication: Hypophosphatasia
     Dosage: UNK
     Route: 065
  2. STRENSIQ [Suspect]
     Active Substance: ASFOTASE ALFA
     Dosage: UNK
  3. STRENSIQ [Suspect]
     Active Substance: ASFOTASE ALFA
     Dosage: UNK
     Route: 065
  4. STRENSIQ [Suspect]
     Active Substance: ASFOTASE ALFA
     Dosage: UNK
  5. STRENSIQ [Suspect]
     Active Substance: ASFOTASE ALFA
     Dosage: 0.6 MILLILITER (HALF DOSE)
  6. STRENSIQ [Suspect]
     Active Substance: ASFOTASE ALFA
     Dosage: 0.6 MILLILITER (HALF DOSE)
  7. STRENSIQ [Suspect]
     Active Substance: ASFOTASE ALFA
     Dosage: 0.6 MILLILITER (HALF DOSE)
  8. STRENSIQ [Suspect]
     Active Substance: ASFOTASE ALFA
     Dosage: 0.6 MILLILITER (HALF DOSE)

REACTIONS (9)
  - Drug hypersensitivity [Not Recovered/Not Resolved]
  - Erythema [Recovered/Resolved]
  - Swelling [Unknown]
  - Injection site erythema [Recovered/Resolved]
  - Injection site pruritus [Not Recovered/Not Resolved]
  - Injection site bruising [Not Recovered/Not Resolved]
  - Injection site inflammation [Recovered/Resolved]
  - Injection site pain [Recovered/Resolved]
  - Product quality issue [Unknown]
